FAERS Safety Report 14871781 (Version 1)
Quarter: 2018Q2

REPORT INFORMATION
  Report Type: Spontaneous
  Country: FR (occurrence: FR)
  Receive Date: 20180509
  Receipt Date: 20180509
  Transmission Date: 20180711
  Serious: Yes (Other)
  Sender: FDA-Public Use
  Company Number: FR-MERCK KGAA-2047497

PATIENT
  Age: 65 Year
  Sex: Female

DRUGS (1)
  1. NOVOTHYROX [Suspect]
     Active Substance: LEVOTHYROXINE SODIUM
     Indication: POST PROCEDURAL HYPOTHYROIDISM
     Dates: end: 2017

REACTIONS (36)
  - Diarrhoea [Not Recovered/Not Resolved]
  - Dyspnoea [None]
  - Flatulence [None]
  - Irritability [None]
  - Feeling abnormal [None]
  - Quality of life decreased [None]
  - Nervousness [None]
  - Chest pain [None]
  - Blood pressure decreased [None]
  - Tremor [None]
  - Anxiety [None]
  - Psychiatric symptom [None]
  - Low density lipoprotein increased [None]
  - Glomerular filtration rate decreased [None]
  - Loss of personal independence in daily activities [None]
  - Dizziness [Not Recovered/Not Resolved]
  - Fatigue [None]
  - Vision blurred [None]
  - Amnesia [None]
  - Impaired driving ability [None]
  - Headache [Not Recovered/Not Resolved]
  - Palpitations [None]
  - Stress [None]
  - Asthenia [Not Recovered/Not Resolved]
  - Myalgia [None]
  - Arthralgia [None]
  - Musculoskeletal stiffness [None]
  - Gastrointestinal disorder [None]
  - Disturbance in attention [None]
  - Weight increased [None]
  - Emotional distress [None]
  - Incorrect dosage administered [None]
  - Anger [None]
  - Sleep disorder [None]
  - Muscle spasms [None]
  - Hot flush [None]

NARRATIVE: CASE EVENT DATE: 201708
